FAERS Safety Report 13982128 (Version 2)
Quarter: 2017Q4

REPORT INFORMATION
  Report Type: Report from Study
  Country: US (occurrence: US)
  Receive Date: 20170918
  Receipt Date: 20171107
  Transmission Date: 20180321
  Serious: Yes (Other)
  Sender: FDA-Public Use
  Company Number: US-TAIHO ONCOLOGY INC-EU-2017-01155

PATIENT
  Sex: Male
  Weight: 110.32 kg

DRUGS (2)
  1. LONSURF [Suspect]
     Active Substance: TIPIRACIL HYDROCHLORIDE\TRIFLURIDINE
     Indication: COLON CANCER STAGE IV
     Dosage: CURRENT CYCLE STARTED 18/AUG/2017 AT 60 MG AM AND 80 MG PM
     Route: 048
     Dates: start: 201612, end: 2017
  2. IRON [Concomitant]
     Active Substance: IRON
     Dosage: NI

REACTIONS (7)
  - Fall [Unknown]
  - Rib fracture [Unknown]
  - White blood cell count decreased [Recovering/Resolving]
  - Cholelithiasis [Unknown]
  - Dermal cyst [Unknown]
  - Disease progression [Unknown]
  - Thyroid calcification [Unknown]

NARRATIVE: CASE EVENT DATE: 2017
